FAERS Safety Report 8933017 (Version 5)
Quarter: 2013Q1

REPORT INFORMATION
  Report Type: Spontaneous
  Country: US (occurrence: US)
  Receive Date: 20121129
  Receipt Date: 20130304
  Transmission Date: 20140127
  Serious: Yes (Hospitalization, Other)
  Sender: FDA-Public Use
  Company Number: PHEH2012US023353

PATIENT
  Age: 52 Year
  Sex: Female
  Weight: 88 kg

DRUGS (5)
  1. GILENYA [Suspect]
     Indication: MULTIPLE SCLEROSIS
     Dosage: 0.5 MG, QD
     Route: 048
     Dates: start: 20121127, end: 20121127
  2. VIT D [Concomitant]
  3. AMBIEN [Concomitant]
  4. CYMBALTA [Concomitant]
  5. PENTOSAN [Concomitant]

REACTIONS (11)
  - Multiple sclerosis relapse [Unknown]
  - Malaise [Unknown]
  - Hypoaesthesia [Unknown]
  - Asthenia [Unknown]
  - Fatigue [Unknown]
  - Hemiparesis [Unknown]
  - Nausea [Unknown]
  - Vomiting [Unknown]
  - Urinary retention [Unknown]
  - Hypertension [Unknown]
  - Dizziness [Unknown]
